FAERS Safety Report 11646313 (Version 3)
Quarter: 2016Q3

REPORT INFORMATION
  Report Type: Spontaneous
  Country: US (occurrence: US)
  Receive Date: 20151020
  Receipt Date: 20160808
  Transmission Date: 20161109
  Serious: Yes (Other)
  Sender: FDA-Public Use
  Company Number: US-ROCHE-1620605

PATIENT
  Sex: Male

DRUGS (16)
  1. ADVIL [Concomitant]
     Active Substance: IBUPROFEN
  2. ATROVENT [Concomitant]
     Active Substance: IPRATROPIUM BROMIDE
  3. ATORVASTATIN [Concomitant]
     Active Substance: ATORVASTATIN
  4. FUROSEMIDE. [Concomitant]
     Active Substance: FUROSEMIDE
  5. ISOSORBIDE MONONITRATE. [Concomitant]
     Active Substance: ISOSORBIDE MONONITRATE
  6. PANTOPRAZOLE [Concomitant]
     Active Substance: PANTOPRAZOLE SODIUM
  7. WARFARIN [Concomitant]
     Active Substance: WARFARIN
  8. FISH OIL [Concomitant]
     Active Substance: FISH OIL
  9. VITAMIN D3 [Concomitant]
     Active Substance: CHOLECALCIFEROL
  10. ASPIRIN. [Concomitant]
     Active Substance: ASPIRIN
  11. TERAZOSIN [Concomitant]
     Active Substance: TERAZOSIN\TERAZOSIN HYDROCHLORIDE
  12. LOSARTAN. [Concomitant]
     Active Substance: LOSARTAN
  13. AMLODIPINE BESYLATE. [Concomitant]
     Active Substance: AMLODIPINE BESYLATE
  14. CARVEDILOL. [Concomitant]
     Active Substance: CARVEDILOL
  15. ESBRIET [Suspect]
     Active Substance: PIRFENIDONE
     Indication: IDIOPATHIC PULMONARY FIBROSIS
     Route: 048
     Dates: start: 20150213
  16. NOVOLIN [Concomitant]
     Active Substance: INSULIN HUMAN

REACTIONS (3)
  - Productive cough [Unknown]
  - Bladder cancer [Unknown]
  - Dizziness [Unknown]
